FAERS Safety Report 23917639 (Version 2)
Quarter: 2024Q2

REPORT INFORMATION
  Report Type: Report from Study
  Country: ES (occurrence: ES)
  Receive Date: 20240530
  Receipt Date: 20240605
  Transmission Date: 20240716
  Serious: Yes (Other)
  Sender: FDA-Public Use
  Company Number: ES-ABBVIE-5774792

PATIENT
  Age: 81 Year
  Sex: Female

DRUGS (3)
  1. CARBIDOPA\LEVODOPA [Suspect]
     Active Substance: CARBIDOPA\LEVODOPA
     Indication: Parkinson^s disease
     Dosage: CONTINUOUS DOSE IS ADJUSTED UPWARDS
     Route: 050
     Dates: start: 20170206, end: 202405
  2. CARBIDOPA\LEVODOPA [Suspect]
     Active Substance: CARBIDOPA\LEVODOPA
     Dosage: DOSE IS REDUCED
     Route: 050
     Dates: start: 202405
  3. CARBIDOPA\LEVODOPA [Suspect]
     Active Substance: CARBIDOPA\LEVODOPA
     Dosage: DOSE CHANGE
     Route: 050
     Dates: start: 202405, end: 202405

REACTIONS (9)
  - Drug abuse [Unknown]
  - Therapeutic product effect incomplete [Unknown]
  - Irritability [Unknown]
  - On and off phenomenon [Unknown]
  - Depressed mood [Unknown]
  - Post-traumatic pain [Unknown]
  - Dyskinesia [Recovering/Resolving]
  - Speech disorder [Unknown]
  - Motor dysfunction [Unknown]

NARRATIVE: CASE EVENT DATE: 20240501
